FAERS Safety Report 25988509 (Version 1)
Quarter: 2025Q4

REPORT INFORMATION
  Report Type: Spontaneous
  Country: US (occurrence: US)
  Receive Date: 20251103
  Receipt Date: 20251103
  Transmission Date: 20260118
  Serious: No
  Sender: SANDOZ
  Company Number: US-SANDOZ-SDZ2025US081446

PATIENT
  Sex: Male

DRUGS (1)
  1. CIPROFLOXACIN AND DEXAMETHASONE [Suspect]
     Active Substance: CIPROFLOXACIN HYDROCHLORIDE\DEXAMETHASONE
     Indication: Product used for unknown indication
     Dosage: 0.3+0.1% 7.5ML,2 PER DAYS FOR 7 DAYS
     Route: 065

REACTIONS (4)
  - Back pain [Unknown]
  - Neck pain [Unknown]
  - Burning sensation [Unknown]
  - Ear discomfort [Unknown]
